FAERS Safety Report 6811863-4 (Version None)
Quarter: 2010Q3

REPORT INFORMATION
  Report Type: 
  Country: None (occurrence: None)
  Receive Date: 20100701
  Receipt Date: 20100617
  Transmission Date: 20110219
  Serious: Yes (Disabling)
  Sender: FDA-Public Use
  Company Number: US-JNJFOC-20100407073

PATIENT
  Sex: Male
  Weight: 104.33 kg

DRUGS (9)
  1. SIMPONI [Suspect]
     Indication: RHEUMATOID ARTHRITIS
     Route: 058
  2. METHOTREXATE SODIUM [Concomitant]
     Indication: RHEUMATOID ARTHRITIS
  3. HORMONES [Concomitant]
     Indication: PITUITARY TUMOUR BENIGN
  4. ACTOS [Concomitant]
     Indication: DIABETES MELLITUS
  5. EYE DROPS [Concomitant]
     Indication: GLAUCOMA
  6. PLAQUENIL [Concomitant]
     Indication: RHEUMATOID ARTHRITIS
  7. MOBIC [Concomitant]
     Indication: RHEUMATOID ARTHRITIS
  8. MULTI-VITAMINS [Concomitant]
  9. CALCIUM CARBONATE [Concomitant]
     Indication: MEDICAL DIET

REACTIONS (7)
  - ASTHENIA [None]
  - HYPERSENSITIVITY [None]
  - HYPOAESTHESIA [None]
  - INJECTION SITE PAIN [None]
  - JOINT SWELLING [None]
  - MYALGIA [None]
  - SCIATICA [None]
